FAERS Safety Report 9375649 (Version 2)
Quarter: 2013Q3

REPORT INFORMATION
  Report Type: Spontaneous
  Country: US (occurrence: US)
  Receive Date: 20130628
  Receipt Date: 20130709
  Transmission Date: 20140515
  Serious: Yes (Other)
  Sender: FDA-Public Use
  Company Number: US-PFIZER INC-2013192343

PATIENT
  Sex: Female

DRUGS (2)
  1. ENBREL [Suspect]
     Dosage: UNK
     Route: 065
  2. METHOTREXATE SODIUM [Suspect]
     Dosage: UNK
     Dates: start: 2013

REACTIONS (4)
  - Cerebrovascular accident [Unknown]
  - Gallbladder disorder [Unknown]
  - Cellulitis [Unknown]
  - Drug ineffective [Unknown]
